FAERS Safety Report 19288011 (Version 7)
Quarter: 2021Q4

REPORT INFORMATION
  Report Type: Report from Study
  Country: US (occurrence: US)
  Receive Date: 20210522
  Receipt Date: 20211222
  Transmission Date: 20220304
  Serious: Yes (Other)
  Sender: FDA-Public Use
  Company Number: NVSC2021US110224

PATIENT
  Age: 81 Year
  Sex: Female

DRUGS (4)
  1. TABRECTA [Suspect]
     Active Substance: CAPMATINIB
     Indication: Lung neoplasm malignant
     Dosage: UNK
     Route: 048
  2. TABRECTA [Suspect]
     Active Substance: CAPMATINIB
     Dosage: 4 DF, BID
     Route: 048
  3. TABRECTA [Suspect]
     Active Substance: CAPMATINIB
     Dosage: 2 DF, QD
     Route: 048
  4. TABRECTA [Suspect]
     Active Substance: CAPMATINIB
     Dosage: 1 DF, QD
     Route: 048

REACTIONS (17)
  - Malignant neoplasm progression [Unknown]
  - Lung neoplasm malignant [Unknown]
  - Increased appetite [Unknown]
  - Abdominal distension [Unknown]
  - Bronchitis [Unknown]
  - Infection [Unknown]
  - Muscle spasms [Unknown]
  - Blood creatinine increased [Unknown]
  - Erythema [Unknown]
  - Flatulence [Unknown]
  - Joint swelling [Unknown]
  - Peripheral swelling [Unknown]
  - Malaise [Unknown]
  - Lung disorder [Unknown]
  - Musculoskeletal discomfort [Unknown]
  - Dyspnoea [Unknown]
  - Respiration abnormal [Not Recovered/Not Resolved]

NARRATIVE: CASE EVENT DATE: 20210827
